FAERS Safety Report 9153130 (Version 1)
Quarter: 2013Q1

REPORT INFORMATION
  Report Type: Spontaneous
  Country: AU (occurrence: None)
  Receive Date: 20130204
  Receipt Date: 20130204
  Transmission Date: 20140127
  Serious: Yes (Hospitalization)
  Sender: FDA-Public Use
  Company Number: AU-ALKEM-000004

PATIENT
  Age: 62 Year
  Sex: Female

DRUGS (7)
  1. HYDRALAZINE [Suspect]
     Indication: HYPERTENSION
  2. THYROXINE (THYROXINE) [Concomitant]
  3. WARFARIN (WARFARIN) [Concomitant]
  4. ROSUVASTATIN (ROSUVASTATIN) [Concomitant]
  5. METOPROLOL (METOPROLOL) [Concomitant]
  6. CLONIDINE (CLONIDINE) [Concomitant]
  7. PERINDOPRIL (PERINDOPRIL) [Concomitant]

REACTIONS (5)
  - Antineutrophil cytoplasmic antibody positive [None]
  - Renal vasculitis [None]
  - Streptococcal bacteraemia [None]
  - Hypertension [None]
  - Aphthous stomatitis [None]
